FAERS Safety Report 10495630 (Version 1)
Quarter: 2014Q4

REPORT INFORMATION
  Report Type: Spontaneous
  Country: SG (occurrence: SG)
  Receive Date: 20141003
  Receipt Date: 20141003
  Transmission Date: 20150528
  Serious: Yes (Other)
  Sender: FDA-Public Use
  Company Number: SG-BAYER-2014-147053

PATIENT
  Age: 18 Year
  Sex: Female

DRUGS (2)
  1. SYNFLEX [Suspect]
     Active Substance: NAPROXEN SODIUM
  2. ACETYLSALICYLIC ACID (} 100 MG) [Suspect]
     Active Substance: ASPIRIN

REACTIONS (1)
  - Dyspnoea [Unknown]

NARRATIVE: CASE EVENT DATE: 20000101
